FAERS Safety Report 10930894 (Version 2)
Quarter: 2015Q3

REPORT INFORMATION
  Report Type: Report from Study
  Country: US (occurrence: US)
  Receive Date: 20150319
  Receipt Date: 20150908
  Transmission Date: 20151125
  Serious: Yes (Hospitalization, Other)
  Sender: FDA-Public Use
  Company Number: US-GILEAD-2015-0142323

PATIENT
  Age: 37 Year
  Sex: Male
  Weight: 87.75 kg

DRUGS (11)
  1. ASPIRIN                            /00002701/ [Concomitant]
     Active Substance: ASPIRIN
  2. DESYREL [Concomitant]
     Active Substance: TRAZODONE HYDROCHLORIDE
  3. BUMEX [Concomitant]
     Active Substance: BUMETANIDE
  4. CARDIZEM [Concomitant]
     Active Substance: DILTIAZEM HYDROCHLORIDE
  5. LOPRESSOR [Concomitant]
     Active Substance: METOPROLOL TARTRATE
  6. ISENTRESS [Concomitant]
     Active Substance: RALTEGRAVIR POTASSIUM
  7. TRUVADA [Suspect]
     Active Substance: EMTRICITABINE\TENOFOVIR DISOPROXIL FUMARATE
     Indication: PRODUCT USED FOR UNKNOWN INDICATION
     Dosage: 1 DF, QD
     Route: 048
  8. ADCIRCA [Concomitant]
     Active Substance: TADALAFIL
  9. ORENITRAM [Concomitant]
     Active Substance: TREPROSTINIL
  10. AMBRISENTAN [Suspect]
     Active Substance: AMBRISENTAN
     Indication: PRODUCT USED FOR UNKNOWN INDICATION
     Dosage: 10 MG, QD
     Route: 048
     Dates: start: 20110615
  11. K-DUR [Concomitant]
     Active Substance: POTASSIUM CHLORIDE

REACTIONS (3)
  - Atrial fibrillation [Recovered/Resolved]
  - Cardiac ablation [Unknown]
  - Atrial flutter [Recovered/Resolved]

NARRATIVE: CASE EVENT DATE: 201407
